FAERS Safety Report 6267947-5 (Version None)
Quarter: 2009Q3

REPORT INFORMATION
  Report Type: 
  Country: None (occurrence: None)
  Receive Date: 20090713
  Receipt Date: 20090629
  Transmission Date: 20100115
  Serious: Yes (Death)
  Sender: FDA-Public Use
  Company Number: KV200800323

PATIENT
  Sex: Male

DRUGS (1)
  1. ISOSORBIDE MONONITRATE(ISOSORBIDE MONONITRATE) SLOW RELEASE TABLET, 30 [Suspect]
     Indication: DRUG USE FOR UNKNOWN INDICATION
     Dosage: ORAL
     Route: 048

REACTIONS (2)
  - BRADYCARDIA [None]
  - PRODUCT QUALITY ISSUE [None]
